FAERS Safety Report 9383905 (Version 1)
Quarter: 2013Q3

REPORT INFORMATION
  Report Type: Spontaneous
  Country: BR (occurrence: BR)
  Receive Date: 20130705
  Receipt Date: 20130705
  Transmission Date: 20140515
  Serious: Yes (Hospitalization)
  Sender: FDA-Public Use
  Company Number: BR-JNJFOC-20130617442

PATIENT
  Age: 2 Year
  Sex: Male
  Weight: 16 kg

DRUGS (1)
  1. TYLENOL GOTAS [Suspect]
     Indication: PRODUCT USED FOR UNKNOWN INDICATION
     Dosage: 1/4 OF THE FLASK
     Route: 048
     Dates: start: 20130623, end: 20130623

REACTIONS (2)
  - Accidental exposure to product [Recovered/Resolved]
  - Liver disorder [Recovered/Resolved]
